FAERS Safety Report 7176492-4 (Version None)
Quarter: 2010Q4

REPORT INFORMATION
  Report Type: 
  Country: None (occurrence: None)
  Receive Date: 20101220
  Receipt Date: 20101214
  Transmission Date: 20110411
  Serious: Yes (Life-Threatening)
  Sender: FDA-Public Use
  Company Number: GB-PFIZER INC-2010147800

PATIENT
  Sex: Male

DRUGS (10)
  1. RAMIPRIL [Suspect]
     Dosage: UNK
     Route: 048
     Dates: start: 20061001, end: 20101022
  2. ATENOLOL [Suspect]
     Dosage: 25 MG, UNK
     Route: 048
     Dates: start: 20011001
  3. PREDNISOLONE [Suspect]
     Indication: SYSTEMIC LUPUS ERYTHEMATOSUS
     Dosage: 5 MG, UNK
     Route: 048
     Dates: start: 20010101
  4. DICLOFENAC SODIUM [Suspect]
     Indication: PAIN
     Dosage: 50 MG, UNK
     Route: 048
  5. HYDROXYCHLOROQUINE [Suspect]
     Indication: SYSTEMIC LUPUS ERYTHEMATOSUS
     Dosage: 200 MG, UNK
     Dates: start: 20100101
  6. ROSUVASTATIN [Suspect]
     Indication: HYPERCHOLESTEROLAEMIA
     Dosage: 10 MG, UNK
     Route: 048
     Dates: start: 20090101
  7. ACETYLSALICYLIC ACID [Concomitant]
     Dosage: 75 MG, UNK
     Route: 048
     Dates: start: 20060101
  8. CALCICHEW [Concomitant]
     Dosage: 1.25 G, UNK
  9. ALENDRONIC ACID [Concomitant]
     Indication: OSTEOPOROSIS
     Dosage: 70 MG, WEEKLY
     Route: 048
     Dates: start: 20100701
  10. MYCOPHENOLATE MOFETIL [Concomitant]

REACTIONS (1)
  - ANGIOEDEMA [None]
